FAERS Safety Report 10607635 (Version 1)
Quarter: 2014Q4

REPORT INFORMATION
  Report Type: Spontaneous
  Country: US (occurrence: None)
  Receive Date: 20141124
  Receipt Date: 20141124
  Transmission Date: 20150529
  Serious: Yes (Disabling)
  Sender: FDA-Public Use
  Company Number: None

PATIENT
  Age: 58 Year
  Sex: Female
  Weight: 120.2 kg

DRUGS (1)
  1. CRESTOR [Suspect]
     Active Substance: ROSUVASTATIN CALCIUM
     Indication: BLOOD CHOLESTEROL
     Dates: start: 201406

REACTIONS (7)
  - Dysstasia [None]
  - Gait disturbance [None]
  - Peripheral swelling [None]
  - Muscular weakness [None]
  - Activities of daily living impaired [None]
  - Balance disorder [None]
  - Pain in extremity [None]

NARRATIVE: CASE EVENT DATE: 201408
